FAERS Safety Report 14337017 (Version 1)
Quarter: 2017Q4

REPORT INFORMATION
  Report Type: Spontaneous
  Country: AU (occurrence: AU)
  Receive Date: 20171229
  Receipt Date: 20171229
  Transmission Date: 20180321
  Serious: Yes (Other)
  Sender: FDA-Public Use
  Company Number: AU-PFIZER INC-2017545399

PATIENT
  Age: 64 Year
  Sex: Male

DRUGS (3)
  1. CLOPIDOGREL [Concomitant]
     Active Substance: CLOPIDOGREL BISULFATE
     Dosage: UNK (LOADING DOSES)
  2. ASPIRIN. [Concomitant]
     Active Substance: ASPIRIN
     Dosage: UNK (LOADING DOSES)
  3. HEPARIN SODIUM. [Suspect]
     Active Substance: HEPARIN SODIUM
     Indication: ANTICOAGULANT THERAPY
     Dosage: 2000 IU, UNK
     Route: 013

REACTIONS (1)
  - Compartment syndrome [Recovered/Resolved]
